FAERS Safety Report 5210262-9 (Version None)
Quarter: 2007Q1

REPORT INFORMATION
  Report Type: 
  Country: None (occurrence: None)
  Receive Date: 20070112
  Receipt Date: 20070112
  Transmission Date: 20070707
  Serious: Yes (Other)
  Sender: FDA-Public Use
  Company Number: None

PATIENT
  Age: 36 Year
  Sex: Female
  Weight: 58.0604 kg

DRUGS (3)
  1. SERTRALINE [Suspect]
     Indication: ANXIETY
     Dosage: 150MG PER DAY
  2. SERTRALINE [Suspect]
     Indication: MOOD SWINGS
     Dosage: 150MG PER DAY
  3. SERTRALINE [Suspect]
     Indication: STRESS
     Dosage: 150MG PER DAY

REACTIONS (2)
  - DRUG INEFFECTIVE [None]
  - PHARMACEUTICAL PRODUCT COMPLAINT [None]
